FAERS Safety Report 13060510 (Version 1)
Quarter: 2016Q4

REPORT INFORMATION
  Report Type: Report from Study
  Country: PE (occurrence: PE)
  Receive Date: 20161224
  Receipt Date: 20161224
  Transmission Date: 20170207
  Serious: Yes (Hospitalization, Other)
  Sender: FDA-Public Use
  Company Number: PE-AMGEN-PERSP2016180638

PATIENT

DRUGS (1)
  1. PROLIA [Suspect]
     Active Substance: DENOSUMAB
     Indication: OSTEOPOROSIS
     Dosage: 60 MG/ML, CYC
     Route: 058
     Dates: start: 20131115

REACTIONS (3)
  - Treatment noncompliance [Unknown]
  - Bronchitis [Recovered/Resolved]
  - Cardiac failure [Recovered/Resolved]
